FAERS Safety Report 19561578 (Version 1)
Quarter: 2021Q3

REPORT INFORMATION
  Report Type: Spontaneous
  Country: US (occurrence: US)
  Receive Date: 20210716
  Receipt Date: 20210716
  Transmission Date: 20211014
  Serious: Yes (Life-Threatening, Hospitalization, Other)
  Sender: FDA-Public Use
  Company Number: None

PATIENT
  Age: 40 Year
  Sex: Female
  Weight: 125.1 kg

DRUGS (2)
  1. OMEPRAZOLE. [Concomitant]
     Active Substance: OMEPRAZOLE
  2. NEUTROGENA BEACH DEF WATER PLUS SUN PROT BR^D SPECT SPF 70 (AV\HOM\OCTI\OCTO\OX) [Suspect]
     Active Substance: AVOBENZONE\HOMOSALATE\OCTISALATE\OCTOCRYLENE\OXYBENZONE
     Indication: PROPHYLAXIS AGAINST SOLAR RADIATION
     Dosage: ?          OTHER STRENGTH:OUNCES SPRAYED;QUANTITY:10 SPRAY(S);?
     Route: 061
     Dates: start: 20200401, end: 20210710

REACTIONS (2)
  - Squamous cell carcinoma [None]
  - Recalled product administered [None]

NARRATIVE: CASE EVENT DATE: 20200929
